FAERS Safety Report 10301170 (Version 4)
Quarter: 2014Q3

REPORT INFORMATION
  Report Type: Report from Study
  Country: JP (occurrence: JP)
  Receive Date: 20140714
  Receipt Date: 20140930
  Transmission Date: 20150326
  Serious: Yes (Hospitalization)
  Sender: FDA-Public Use
  Company Number: JP-PFIZER INC-2014148197

PATIENT
  Age: 75 Year
  Sex: Male
  Weight: 63.4 kg

DRUGS (24)
  1. PREDONINE [Suspect]
     Active Substance: PREDNISOLONE\PREDNISOLONE ACETATE\PREDNISOLONE SODIUM SUCCINATE
     Dosage: 20 MG, 2X/DAY
     Route: 048
     Dates: end: 20140401
  2. MAGLAX [Concomitant]
     Active Substance: MAGNESIUM OXIDE
     Dosage: 500 MG, 3X/DAY
     Route: 048
  3. GLUFAST [Concomitant]
     Active Substance: MITIGLINIDE
     Dosage: 10 MG, 3X/DAY
     Route: 048
  4. REZALTAS HD [Concomitant]
     Dosage: 1 DF, 1X/DAY
     Route: 048
     Dates: end: 20140413
  5. PREDONINE [Suspect]
     Active Substance: PREDNISOLONE\PREDNISOLONE ACETATE\PREDNISOLONE SODIUM SUCCINATE
     Dosage: 15 MG, 2X/DAY
     Dates: start: 20140402, end: 20140407
  6. PREDONINE [Suspect]
     Active Substance: PREDNISOLONE\PREDNISOLONE ACETATE\PREDNISOLONE SODIUM SUCCINATE
     Dosage: 10 MG, 1X/DAY
     Dates: start: 20140422, end: 20140428
  7. PREDONINE [Suspect]
     Active Substance: PREDNISOLONE\PREDNISOLONE ACETATE\PREDNISOLONE SODIUM SUCCINATE
     Dosage: 2.5 MG, 1X/DAY
     Dates: start: 20140521
  8. REVOLADE [Concomitant]
     Active Substance: ELTROMBOPAG
     Dosage: 12.5 MG, 1X/DAY
     Route: 048
     Dates: end: 20140406
  9. STRONGER NEO MINOPHAGEN C [Concomitant]
     Dosage: 40 ML, 1X/DAY
     Route: 042
     Dates: end: 20140430
  10. KARY UNI [Concomitant]
     Active Substance: PIRENOXINE
     Dosage: 1 OR 2 DROPS, SEVERAL TIMES/DAY
     Route: 047
  11. PREDONINE [Suspect]
     Active Substance: PREDNISOLONE\PREDNISOLONE ACETATE\PREDNISOLONE SODIUM SUCCINATE
     Dosage: 10 MG, 2X/DAY
     Dates: start: 20140408, end: 20140414
  12. PREDONINE [Suspect]
     Active Substance: PREDNISOLONE\PREDNISOLONE ACETATE\PREDNISOLONE SODIUM SUCCINATE
     Dosage: 15 MG, 1X/DAY
     Dates: start: 20140415, end: 20140421
  13. BAKTAR [Concomitant]
     Active Substance: SULFAMETHOXAZOLE\TRIMETHOPRIM
     Dosage: 480 MG, 1X/DAY
     Route: 048
     Dates: end: 20140407
  14. LASIX [Suspect]
     Active Substance: FUROSEMIDE
     Dosage: 20 MG, 1X/DAY
     Route: 048
     Dates: start: 20140415, end: 20140424
  15. EURODIN [Concomitant]
     Active Substance: ESTAZOLAM
     Dosage: 2 MG, AS NEEDED
     Route: 048
  16. PREDONINE [Suspect]
     Active Substance: PREDNISOLONE\PREDNISOLONE ACETATE\PREDNISOLONE SODIUM SUCCINATE
     Dosage: 7.5 MG, 1X/DAY
     Dates: start: 20140429, end: 20140505
  17. HACHIAZULE [Concomitant]
     Dosage: 2 G, 3X/DAY
     Route: 048
     Dates: end: 20140413
  18. LASIX [Suspect]
     Active Substance: FUROSEMIDE
     Indication: OEDEMA
     Dosage: 1 ML, 1X/DAY
     Route: 042
     Dates: start: 20140402, end: 20140402
  19. CRIZOTINIB [Suspect]
     Active Substance: CRIZOTINIB
     Indication: NON-SMALL CELL LUNG CANCER
     Dosage: 250 MG, 2X/DAY
     Route: 048
     Dates: start: 20140327, end: 20140414
  20. PREDONINE [Suspect]
     Active Substance: PREDNISOLONE\PREDNISOLONE ACETATE\PREDNISOLONE SODIUM SUCCINATE
     Dosage: 5 MG, 1X/DAY
     Dates: start: 20140506, end: 20140520
  21. LASIX [Suspect]
     Active Substance: FUROSEMIDE
     Dosage: 20 MG, 1X/DAY
     Route: 048
     Dates: start: 20140404, end: 20140406
  22. LASIX [Suspect]
     Active Substance: FUROSEMIDE
     Dosage: 20 MG, 2X/DAY
     Route: 048
     Dates: start: 20140407, end: 20140414
  23. FUNGIZONE [Concomitant]
     Active Substance: AMPHOTERICIN B
     Dosage: 3 ML, 3X/DAY
     Route: 048
     Dates: end: 20140413
  24. NEXIUM [Concomitant]
     Active Substance: ESOMEPRAZOLE MAGNESIUM
     Dosage: 20 MG, 1X/DAY
     Route: 048
     Dates: end: 20140407

REACTIONS (4)
  - Pneumonia [Recovering/Resolving]
  - Oedema [Recovering/Resolving]
  - Dermatitis [Recovering/Resolving]
  - Renal impairment [Recovering/Resolving]

NARRATIVE: CASE EVENT DATE: 20140401
